FAERS Safety Report 19877429 (Version 1)
Quarter: 2021Q3

REPORT INFORMATION
  Report Type: Spontaneous
  Country: NL (occurrence: NL)
  Receive Date: 20210923
  Receipt Date: 20210923
  Transmission Date: 20211014
  Serious: Yes (Life-Threatening, Hospitalization, Other)
  Sender: FDA-Public Use
  Company Number: NL-PFIZER INC-202101193196

PATIENT
  Age: 67 Year
  Sex: Male
  Weight: 98.1 kg

DRUGS (16)
  1. CARBOPLATIN. [Suspect]
     Active Substance: CARBOPLATIN
     Dosage: 5 AUC, ONCE EVERY 3 WEEKS
     Route: 042
     Dates: start: 20210803, end: 20210803
  2. EPCORITAMAB. [Suspect]
     Active Substance: EPCORITAMAB
     Dosage: 0.16 MG, SINGLE
     Route: 058
     Dates: start: 20210802, end: 20210802
  3. CLEMASTINE [Concomitant]
     Active Substance: CLEMASTINE
     Dates: start: 20210809, end: 20210809
  4. DEXAMETHASONE. [Suspect]
     Active Substance: DEXAMETHASONE
     Dosage: UNK
     Dates: start: 20210802, end: 20210805
  5. HYPROMELLOSE [Concomitant]
     Active Substance: HYPROMELLOSES
     Dates: start: 20210803, end: 20210805
  6. CYTARABINE. [Suspect]
     Active Substance: CYTARABINE
     Dosage: 2000 MG/M2, 1Q3W
     Route: 042
     Dates: start: 20210803, end: 20210803
  7. EPCORITAMAB. [Suspect]
     Active Substance: EPCORITAMAB
     Dosage: 0.8 MG, SINGLE
     Route: 058
     Dates: start: 20210809, end: 20210809
  8. PREDNISOLONE. [Concomitant]
     Active Substance: PREDNISOLONE
     Dates: start: 20210802, end: 20210818
  9. PARACETAMOL [Concomitant]
     Active Substance: ACETAMINOPHEN
     Dosage: UNK
     Dates: start: 20210802, end: 20210809
  10. RASBURICASE [Concomitant]
     Active Substance: RASBURICASE
     Dosage: UNK
     Dates: start: 20210802, end: 20210804
  11. MAGNESIUMSULFAAT [Concomitant]
     Dosage: UNK, 3X/DAY
     Dates: start: 20210802, end: 20210804
  12. PARACETAMOL [Concomitant]
     Active Substance: ACETAMINOPHEN
     Dosage: UNK
     Dates: start: 20210809, end: 20210809
  13. CYTARABINE. [Suspect]
     Active Substance: CYTARABINE
     Dosage: 2000 MG/M2, 1Q3W
     Route: 042
     Dates: start: 20210803, end: 20210804
  14. RITUXIMAB. [Suspect]
     Active Substance: RITUXIMAB
     Dosage: ONCE EVERY 3 WEEKS
     Route: 042
     Dates: start: 20210802, end: 20210802
  15. ONDANSETRON [Concomitant]
     Active Substance: ONDANSETRON
     Dosage: UNK
     Dates: start: 20210802, end: 20210805
  16. CLEMASTINE [Concomitant]
     Active Substance: CLEMASTINE
     Dosage: UNK
     Dates: start: 20210802, end: 20210809

REACTIONS (3)
  - Respiratory failure [Unknown]
  - Guillain-Barre syndrome [Unknown]
  - Quadriparesis [Not Recovered/Not Resolved]

NARRATIVE: CASE EVENT DATE: 20210810
